FAERS Safety Report 9607586 (Version 1)
Quarter: 2013Q4

REPORT INFORMATION
  Report Type: Spontaneous
  Country: US (occurrence: None)
  Receive Date: 20131008
  Receipt Date: 20131008
  Transmission Date: 20140711
  Serious: Yes (Life-Threatening, Other)
  Sender: FDA-Public Use
  Company Number: None

PATIENT
  Sex: Female

DRUGS (1)
  1. PRAMIPEXOLE [Suspect]
     Indication: RESTLESS LEGS SYNDROME
     Route: 048

REACTIONS (5)
  - Abnormal behaviour [None]
  - Hyperphagia [None]
  - Compulsive shopping [None]
  - Pathological gambling [None]
  - Sudden onset of sleep [None]
